FAERS Safety Report 16880945 (Version 8)
Quarter: 2024Q1

REPORT INFORMATION
  Report Type: Spontaneous
  Country: US (occurrence: US)
  Receive Date: 20191003
  Receipt Date: 20240220
  Transmission Date: 20240409
  Serious: Yes (Other)
  Sender: FDA-Public Use
  Company Number: US-PFIZER INC-2019424168

PATIENT
  Age: 59 Year
  Sex: Female

DRUGS (7)
  1. XELJANZ [Interacting]
     Active Substance: TOFACITINIB CITRATE
     Indication: Rheumatoid arthritis
     Dosage: 5 MG, 1X/DAY
     Route: 048
     Dates: start: 20190802, end: 202211
  2. XELJANZ [Interacting]
     Active Substance: TOFACITINIB CITRATE
     Dosage: 5 MG, 1X/DAY
     Route: 048
     Dates: end: 202303
  3. XELJANZ [Interacting]
     Active Substance: TOFACITINIB CITRATE
     Dosage: 5 MG, 1X/DAY
     Route: 048
     Dates: start: 2023
  4. CELLCEPT [Interacting]
     Active Substance: MYCOPHENOLATE MOFETIL
     Indication: Pulmonary congestion
     Dosage: UNK
  5. PREDNISONE [Concomitant]
     Active Substance: PREDNISONE
     Dosage: UNK
  6. MYCOPHENOLIC ACID [Concomitant]
     Active Substance: MYCOPHENOLIC ACID
     Indication: Lung disorder
     Dosage: UNK
  7. XARELTO [Concomitant]
     Active Substance: RIVAROXABAN
     Dosage: UNK

REACTIONS (7)
  - Thrombosis [Unknown]
  - Off label use [Unknown]
  - Intentional dose omission [Unknown]
  - Urinary tract infection [Unknown]
  - Drug interaction [Unknown]
  - Nasal congestion [Unknown]
  - Gastrointestinal disorder [Unknown]

NARRATIVE: CASE EVENT DATE: 20190101
